FAERS Safety Report 19869402 (Version 1)
Quarter: 2021Q3

REPORT INFORMATION
  Report Type: Spontaneous
  Country: DE (occurrence: DE)
  Receive Date: 20210922
  Receipt Date: 20210922
  Transmission Date: 20211014
  Serious: Yes (Hospitalization)
  Sender: FDA-Public Use
  Company Number: DE-TEVA-2021-DE-1955913

PATIENT
  Age: 73 Year
  Sex: Female

DRUGS (11)
  1. PERINDOPRIL ERBUMIN GLENMARK 4MG [Suspect]
     Active Substance: PERINDOPRIL ERBUMINE
     Dosage: 4 MILLIGRAM DAILY; 1?0?0?0
     Route: 048
  2. ALLOPURINOL. [Concomitant]
     Active Substance: ALLOPURINOL
     Dosage: 150 MILLIGRAM DAILY; 300 MG, 0.5?0?0?0
     Route: 048
  3. QUENSYL [Concomitant]
     Active Substance: HYDROXYCHLOROQUINE
     Dosage: 400 MILLIGRAM DAILY; 1?0?1?0
     Route: 048
  4. NITROLINGUAL [Concomitant]
     Active Substance: NITROGLYCERIN
     Dosage: IF NECESSARY,
     Route: 060
  5. AZITHROMYCIN ANHYDROUS. [Suspect]
     Active Substance: AZITHROMYCIN ANHYDROUS
     Indication: INFECTION
     Dosage: 500 MILLIGRAM DAILY; AZITHROMYCIN 500 MG FOR 3 DAYS; 0?1?0; TAKEN
     Route: 048
  6. TORASEMID [Concomitant]
     Active Substance: TORSEMIDE
     Dosage: 10 MILLIGRAM DAILY; 1?0?0?0
     Route: 048
  7. DEKRISTOLMIN 20000I.E. [Concomitant]
     Dosage: 20,000 IU, ONCE A WEEK
     Route: 048
  8. METOPROLOL. [Concomitant]
     Active Substance: METOPROLOL
     Dosage: 95 MILLIGRAM DAILY; 1?0?1?0, EXTENDED?RELEASE TABLETS
     Route: 048
  9. ASS 100 MG HEUMANN [Concomitant]
     Dosage: 100 MILLIGRAM DAILY; 1?0?0?0
     Route: 048
  10. SIMVASTATIN. [Concomitant]
     Active Substance: SIMVASTATIN
     Dosage: 40 MILLIGRAM DAILY; 0?0?1?0
     Route: 048
  11. BERODUAL N [Concomitant]
     Active Substance: FENOTEROL HYDROBROMIDE\IPRATROPIUM BROMIDE
     Dosage: IF NECESSARY, METERED DOSE INHALER
     Route: 055

REACTIONS (3)
  - Swollen tongue [Unknown]
  - Ventricular extrasystoles [Unknown]
  - Dyspnoea exertional [Unknown]

NARRATIVE: CASE EVENT DATE: 20210628
